FAERS Safety Report 4835645-8 (Version None)
Quarter: 2005Q4

REPORT INFORMATION
  Report Type: 
  Country: None (occurrence: None)
  Receive Date: 20051121
  Receipt Date: 20051107
  Transmission Date: 20060501
  Serious: Yes (Hospitalization, Disabling, Other)
  Sender: FDA-Public Use
  Company Number: 2005152357

PATIENT
  Age: 56 Year
  Sex: Female

DRUGS (9)
  1. CELEBRA (CELECOXIB) [Suspect]
     Indication: OSTEOARTHRITIS
     Dosage: (200 MG,), ORAL
     Route: 048
     Dates: start: 20010101
  2. NEURONTIN [Concomitant]
  3. TRAMADOL HCL [Concomitant]
  4. TOLVON (MIANSERIN HYDROCHLORIDE) [Concomitant]
  5. APODORM (NITRAZEPAM) [Concomitant]
  6. LANSOPRAZOLE [Concomitant]
  7. AFIPRAN (METOCLOPRAMIDE HYDROCHLORIDE) [Concomitant]
  8. FOSAMAX [Concomitant]
  9. MOGADON (NITRAZEPAM) [Concomitant]

REACTIONS (10)
  - CAROTID ARTERY ATHEROMA [None]
  - CEREBRAL INFARCTION [None]
  - CEREBRAL ISCHAEMIA [None]
  - COGNITIVE DISORDER [None]
  - DISTURBANCE IN ATTENTION [None]
  - DRUG HYPERSENSITIVITY [None]
  - FACIAL PALSY [None]
  - HEMIPLEGIA [None]
  - IMPAIRED WORK ABILITY [None]
  - SPEECH DISORDER [None]
